FAERS Safety Report 10391086 (Version 1)
Quarter: 2014Q3

REPORT INFORMATION
  Report Type: Spontaneous
  Country: US (occurrence: US)
  Receive Date: 20140818
  Receipt Date: 20140818
  Transmission Date: 20150326
  Serious: Yes (Hospitalization)
  Sender: FDA-Public Use
  Company Number: US-VIIV HEALTHCARE LIMITED-A1084706A

PATIENT

DRUGS (3)
  1. UNKNOWN [Concomitant]
     Active Substance: UNSPECIFIED INGREDIENT
  2. TIVICAY [Suspect]
     Active Substance: DOLUTEGRAVIR SODIUM
     Indication: PRODUCT USED FOR UNKNOWN INDICATION
     Route: 065
  3. EPZICOM [Suspect]
     Active Substance: ABACAVIR SULFATE\LAMIVUDINE
     Indication: HIV INFECTION
     Dosage: 1TAB PER DAY
     Route: 048

REACTIONS (3)
  - Adverse event [Unknown]
  - CD4 lymphocytes decreased [Unknown]
  - Hepatitis [Unknown]
